FAERS Safety Report 24793331 (Version 1)
Quarter: 2024Q4

REPORT INFORMATION
  Report Type: Spontaneous
  Country: FR (occurrence: FR)
  Receive Date: 20241231
  Receipt Date: 20241231
  Transmission Date: 20250115
  Serious: Yes (Hospitalization)
  Sender: HIKMA
  Company Number: FR-HIKMA PHARMACEUTICALS-FR-H14001-24-11995

PATIENT
  Age: 81 Year
  Sex: Female
  Weight: 52 kg

DRUGS (5)
  1. BISOPROLOL FUMARATE [Suspect]
     Active Substance: BISOPROLOL FUMARATE
     Indication: Product used for unknown indication
     Dosage: 1.25 MILLIGRAM, QD
     Route: 048
     Dates: end: 20240707
  2. CETIRIZINE HYDROCHLORIDE [Suspect]
     Active Substance: CETIRIZINE HYDROCHLORIDE
     Indication: Prophylaxis
     Dosage: 10 MILLIGRAM, 1 CYCLE
     Route: 048
     Dates: start: 20240523, end: 20240627
  3. METHYLPREDNISOLONE [Suspect]
     Active Substance: METHYLPREDNISOLONE
     Indication: Prophylaxis
     Dosage: 40 MILLIGRAM, 1 CYCLE
     Route: 042
     Dates: start: 20240523, end: 20240627
  4. PACLITAXEL [Suspect]
     Active Substance: PACLITAXEL
     Indication: Invasive ductal breast carcinoma
     Dosage: 90 MILLIGRAM/SQ. METER, 1 CYCLE
     Route: 042
     Dates: start: 20240523, end: 20240627
  5. RANITIDINE [Suspect]
     Active Substance: RANITIDINE
     Indication: Prophylaxis
     Dosage: 50 MILLIGRAM, 1 CYCLE
     Route: 042
     Dates: start: 20240523, end: 20240627

REACTIONS (1)
  - Cardiac failure [Not Recovered/Not Resolved]

NARRATIVE: CASE EVENT DATE: 20240705
